FAERS Safety Report 10187482 (Version 1)
Quarter: 2014Q2

REPORT INFORMATION
  Report Type: Spontaneous
  Country: US (occurrence: US)
  Receive Date: 20140522
  Receipt Date: 20140522
  Transmission Date: 20141212
  Serious: No
  Sender: FDA-Public Use
  Company Number: US-SANOFI-AVENTIS-2013SA080192

PATIENT
  Age: 53 Year
  Sex: Female

DRUGS (3)
  1. LANTUS SOLOSTAR [Suspect]
     Indication: DIABETES MELLITUS
     Dosage: DOSE:40 UNIT(S)
     Route: 058
     Dates: start: 20130624
  2. SOLOSTAR [Concomitant]
     Indication: DIABETES MELLITUS
     Dates: start: 20130624
  3. NOVOLOG [Concomitant]

REACTIONS (2)
  - Toothache [Unknown]
  - Infection [Unknown]
